FAERS Safety Report 11003286 (Version 1)
Quarter: 2015Q2

REPORT INFORMATION
  Report Type: Report from Study
  Country: JP (occurrence: JP)
  Receive Date: 20150409
  Receipt Date: 20150409
  Transmission Date: 20150821
  Serious: Yes (Hospitalization, Other)
  Sender: FDA-Public Use
  Company Number: JP-ROCHE-1561536

PATIENT

DRUGS (1)
  1. RITUXIMAB [Suspect]
     Active Substance: RITUXIMAB
     Indication: LIVER TRANSPLANT
     Route: 042

REACTIONS (10)
  - Cholecystitis [Recovered/Resolved]
  - Pyrexia [Unknown]
  - Blood pressure decreased [Unknown]
  - C-reactive protein increased [Unknown]
  - Peritonitis [Recovered/Resolved]
  - Blood urea increased [Unknown]
  - Thrombocytopenia [Recovered/Resolved]
  - Chills [Unknown]
  - Blood bilirubin increased [Unknown]
  - Blood creatinine increased [Unknown]
